FAERS Safety Report 7509662-3 (Version None)
Quarter: 2011Q2

REPORT INFORMATION
  Report Type: 
  Country: None (occurrence: None)
  Receive Date: 20110527
  Receipt Date: 20110513
  Transmission Date: 20111010
  Serious: Yes (Other)
  Sender: FDA-Public Use
  Company Number: US-JNJFOC-20110401732

PATIENT
  Sex: Female
  Weight: 80.74 kg

DRUGS (7)
  1. REMICADE [Suspect]
     Route: 042
     Dates: start: 20091229, end: 20091229
  2. UNSPECIFIED DEPRESSION MEDICATION [Concomitant]
  3. REMICADE [Suspect]
     Route: 042
     Dates: start: 20030101
  4. REMICADE [Suspect]
     Indication: CROHN'S DISEASE
     Route: 042
     Dates: end: 20090629
  5. METHOTREXATE [Concomitant]
  6. SLEEP MEDICATION NOS [Concomitant]
  7. OXYCODONE HCL [Concomitant]

REACTIONS (23)
  - ECZEMA [None]
  - BACK PAIN [None]
  - HEPATIC ENZYME INCREASED [None]
  - LEUKOCYTOSIS [None]
  - ONYCHOCLASIS [None]
  - JOINT SWELLING [None]
  - ONYCHOMADESIS [None]
  - PSORIASIS [None]
  - EAR INFECTION [None]
  - STAPHYLOCOCCAL INFECTION [None]
  - ANTIBODY TEST POSITIVE [None]
  - THERAPEUTIC RESPONSE DECREASED [None]
  - SYSTEMIC LUPUS ERYTHEMATOSUS [None]
  - ALOPECIA [None]
  - NAIL DISORDER [None]
  - PSORIATIC ARTHROPATHY [None]
  - ACTIVITIES OF DAILY LIVING IMPAIRED [None]
  - PAIN [None]
  - IMPAIRED WORK ABILITY [None]
  - RHEUMATOID ARTHRITIS [None]
  - JOINT EFFUSION [None]
  - RASH GENERALISED [None]
  - PYREXIA [None]
